FAERS Safety Report 14128157 (Version 2)
Quarter: 2018Q1

REPORT INFORMATION
  Report Type: Spontaneous
  Country: FR (occurrence: FR)
  Receive Date: 20171026
  Receipt Date: 20180125
  Transmission Date: 20180508
  Serious: Yes (Other)
  Sender: FDA-Public Use
  Company Number: FR-MERCK KGAA-2031529

PATIENT
  Age: 61 Year
  Sex: Male

DRUGS (1)
  1. NOVOTHYROX [Suspect]
     Active Substance: LEVOTHYROXINE SODIUM
     Indication: POST PROCEDURAL HYPOTHYROIDISM
     Dates: start: 20170701

REACTIONS (6)
  - Chest discomfort [Recovered/Resolved]
  - Myalgia [Recovered/Resolved]
  - Muscle rigidity [Recovered/Resolved]
  - Fatigue [None]
  - Muscle spasms [Recovered/Resolved]
  - Insomnia [None]

NARRATIVE: CASE EVENT DATE: 2017
